FAERS Safety Report 8332701-7 (Version None)
Quarter: 2012Q2

REPORT INFORMATION
  Report Type: 
  Country: None (occurrence: None)
  Receive Date: 20120503
  Receipt Date: 20120321
  Transmission Date: 20120825
  Serious: No
  Sender: FDA-Public Use
  Company Number: US-MYLANLABS-2012S1003249

PATIENT
  Age: 57 Year
  Sex: Male

DRUGS (18)
  1. HYDROCODONE [Concomitant]
     Indication: PAIN
  2. TYLENOL (CAPLET) [Concomitant]
  3. MORPHINE SULFATE [Suspect]
     Indication: BACK PAIN
     Dates: start: 20111125
  4. MORPHINE SULFATE [Suspect]
     Dates: start: 20111125
  5. SOMA [Concomitant]
     Indication: MUSCLE SPASMS
  6. OSTEO BI-FLEX [Concomitant]
  7. MORPHINE SULFATE [Suspect]
     Indication: OSTEOARTHRITIS
     Dates: start: 20111125
  8. MORPHINE SULFATE [Suspect]
     Indication: INTERVERTEBRAL DISC DEGENERATION
     Dates: start: 20111125
  9. MORPHINE SULFATE [Suspect]
     Dates: start: 20111125
  10. THYROID [Concomitant]
  11. MORPHINE SULFATE [Suspect]
     Dates: start: 20111125
  12. BLOOD PRESSURE MEDICATION [Concomitant]
  13. ASPIRIN [Concomitant]
  14. MORPHINE SULFATE [Suspect]
     Indication: NECK PAIN
     Dates: start: 20111125
  15. MORPHINE SULFATE [Suspect]
     Indication: PAIN
     Dates: start: 20111125
  16. MORPHINE SULFATE [Suspect]
     Dates: start: 20111125
  17. CHOLESTEROL MEDICATION [Concomitant]
  18. MORPHINE SULFATE [Suspect]
     Dates: start: 20111125

REACTIONS (5)
  - BACK PAIN [None]
  - FUNCTIONAL GASTROINTESTINAL DISORDER [None]
  - ABDOMINAL DISCOMFORT [None]
  - DRUG INEFFECTIVE [None]
  - NECK PAIN [None]
